FAERS Safety Report 16892007 (Version 1)
Quarter: 2019Q4

REPORT INFORMATION
  Report Type: Spontaneous
  Country: CA (occurrence: CA)
  Receive Date: 20191007
  Receipt Date: 20191007
  Transmission Date: 20200122
  Serious: Yes (Other)
  Sender: FDA-Public Use
  Company Number: CA-IGSA-SR10009206

PATIENT
  Age: 51 Year
  Sex: Female
  Weight: 60 kg

DRUGS (9)
  1. PROLASTIN [Suspect]
     Active Substance: .ALPHA.1-PROTEINASE INHIBITOR HUMAN
     Dosage: 3600 MG, Q.WK.
     Route: 042
     Dates: start: 20190404
  2. METOPROLOL. [Concomitant]
     Active Substance: METOPROLOL
  3. DILANTIN [Concomitant]
     Active Substance: PHENYTOIN
  4. PROLASTIN [Suspect]
     Active Substance: .ALPHA.1-PROTEINASE INHIBITOR HUMAN
     Dosage: 3600 MG, Q.WK.
     Route: 042
     Dates: start: 20190307
  5. ZENHALE [Concomitant]
     Active Substance: FORMOTEROL FUMARATE\MOMETASONE FUROATE
  6. PROLASTIN [Suspect]
     Active Substance: .ALPHA.1-PROTEINASE INHIBITOR HUMAN
     Indication: ALPHA-1 ANTI-TRYPSIN DEFICIENCY
     Dosage: 3600 MG, Q.WK.
     Route: 042
     Dates: start: 20190423
  7. PROLASTIN [Suspect]
     Active Substance: .ALPHA.1-PROTEINASE INHIBITOR HUMAN
     Dosage: 3600 MG, Q.WK.
     Route: 042
     Dates: start: 20180301
  8. PROLASTIN [Suspect]
     Active Substance: .ALPHA.1-PROTEINASE INHIBITOR HUMAN
     Dosage: 3600 MG, Q.WK.
     Route: 042
     Dates: start: 20190321
  9. ASA [Concomitant]
     Active Substance: ASPIRIN

REACTIONS (1)
  - Tongue cancer metastatic [Not Recovered/Not Resolved]

NARRATIVE: CASE EVENT DATE: 201904
